FAERS Safety Report 8866157 (Version 3)
Quarter: 2012Q4

REPORT INFORMATION
  Report Type: 
  Country: AU (occurrence: AU)
  Receive Date: 20121025
  Receipt Date: 20121112
  Transmission Date: 20130627
  Serious: Yes (Death, Other)
  Sender: FDA-Public Use
  Company Number: AU-ROCHE-1143292

PATIENT
  Age: 67 None
  Sex: Female

DRUGS (4)
  1. LUCENTIS [Suspect]
     Indication: PRODUCT USED FOR UNKNOWN INDICATION
     Route: 050
     Dates: start: 20120704
  2. LUCENTIS [Suspect]
     Route: 050
     Dates: start: 20120801
  3. LUCENTIS [Suspect]
     Route: 050
     Dates: start: 20120829
  4. LUCENTIS [Suspect]
     Route: 050
     Dates: start: 20121005

REACTIONS (3)
  - Cardiac procedure complication [Fatal]
  - Iron deficiency anaemia [Unknown]
  - Aortic arteriosclerosis [Unknown]
